FAERS Safety Report 11727214 (Version 1)
Quarter: 2015Q4

REPORT INFORMATION
  Report Type: Spontaneous
  Country: FR (occurrence: FR)
  Receive Date: 20151112
  Receipt Date: 20151112
  Transmission Date: 20160304
  Serious: Yes (Hospitalization, Other)
  Sender: FDA-Public Use
  Company Number: FR-JNJFOC-20151103574

PATIENT
  Age: 92 Year
  Sex: Male

DRUGS (2)
  1. ZYTIGA [Suspect]
     Active Substance: ABIRATERONE ACETATE
     Indication: PROSTATE CANCER METASTATIC
     Route: 050
     Dates: start: 20150703
  2. LASIX [Suspect]
     Active Substance: FUROSEMIDE
     Indication: ARRHYTHMIA
     Dosage: 2 TABLETS IN THE MORNING AND THE NOON
     Route: 048
     Dates: end: 20150813

REACTIONS (6)
  - Wrong technique in product usage process [Unknown]
  - Hypokalaemia [Recovering/Resolving]
  - Intentional product misuse [Recovered/Resolved]
  - Inappropriate schedule of drug administration [Unknown]
  - Food interaction [Recovered/Resolved]
  - Off label use [Unknown]

NARRATIVE: CASE EVENT DATE: 20150717
